FAERS Safety Report 11626135 (Version 3)
Quarter: 2015Q4

REPORT INFORMATION
  Report Type: Report from Study
  Country: US (occurrence: US)
  Receive Date: 20151013
  Receipt Date: 20151029
  Transmission Date: 20160304
  Serious: Yes (Death, Hospitalization)
  Sender: FDA-Public Use
  Company Number: US-BAYER-2015-435164

PATIENT
  Age: 62 Year
  Sex: Male

DRUGS (1)
  1. NEXAVAR [Suspect]
     Active Substance: SORAFENIB
     Indication: HEPATIC CANCER
     Dosage: 400 MG, BID
     Route: 048
     Dates: start: 20150925, end: 20151015

REACTIONS (5)
  - Upper gastrointestinal haemorrhage [None]
  - Diarrhoea [None]
  - Confusional state [None]
  - Death [Fatal]
  - Hiccups [None]

NARRATIVE: CASE EVENT DATE: 20150925
